FAERS Safety Report 20493950 (Version 1)
Quarter: 2022Q1

REPORT INFORMATION
  Report Type: Other
  Country: US (occurrence: None)
  Receive Date: 20220221
  Receipt Date: 20220221
  Transmission Date: 20220423
  Serious: Yes (Death)
  Sender: FDA-Public Use
  Company Number: US-ROCHE-3028850

PATIENT
  Sex: Male

DRUGS (12)
  1. AVASTIN [Suspect]
     Active Substance: BEVACIZUMAB
     Indication: Rectal cancer
     Dosage: INFUSE 400MG INTRAVENOUSLY EVERY 2 WEEK(S) AS DIRECTED
     Route: 042
  2. ACETAMINOPHEN [Concomitant]
     Active Substance: ACETAMINOPHEN
     Dosage: 2 TAB PO Q4 HOURS PRN MILD PAIN OR FEVER
     Route: 048
  3. ALBUTEROL [Concomitant]
     Active Substance: ALBUTEROL
     Dosage: 3 ML VIA NEB FOUR TIMES A DAY
  4. ALTEPLASE [Concomitant]
     Active Substance: ALTEPLASE
     Dosage: 2 ML QDAY
  5. EMEND [Concomitant]
     Active Substance: APREPITANT
     Dosage: 1 CAP PO 1 PACK EVERY 2 WEEKS WITH CHEMO
     Route: 048
  6. HEPARIN SODIUM [Concomitant]
     Active Substance: HEPARIN SODIUM
     Dosage: 50 UNIT, 5ML IV PUSH ONCE A MONTH
  7. LEVOFLOXACIN [Concomitant]
     Active Substance: LEVOFLOXACIN
     Dosage: Q24 HOURS
     Route: 048
  8. ONDANSETRON [Concomitant]
     Active Substance: ONDANSETRON
     Dosage: Q 8 HOURS PRN FOR NAUSEA AND VOMITING
     Route: 048
  9. ONDANSETRON [Concomitant]
     Active Substance: ONDANSETRON
     Dosage: Q 8 HOURS PRN FOR NAUSEA AND VOMITING
     Route: 048
  10. OXYCODONE [Concomitant]
     Active Substance: OXYCODONE
     Dosage: Q 3 HOURS PRN PAIN MODERATE
     Route: 048
  11. SIMETHICONE (DIMETHICONE) [Concomitant]
     Active Substance: DIMETHICONE
  12. SODIUM CHLORIDE [Concomitant]
     Active Substance: SODIUM CHLORIDE

REACTIONS (1)
  - Death [Fatal]
